FAERS Safety Report 24358344 (Version 1)
Quarter: 2024Q3

REPORT INFORMATION
  Report Type: Report from Study
  Country: CA (occurrence: CA)
  Receive Date: 20240924
  Receipt Date: 20240924
  Transmission Date: 20241017
  Serious: Yes (Death, Other)
  Sender: SANDOZ
  Company Number: CA-002147023-NVSC2022CA223545

PATIENT
  Age: 88 Year
  Sex: Female

DRUGS (2)
  1. ERELZI [Suspect]
     Active Substance: ETANERCEPT-SZZS
     Indication: Rheumatoid arthritis
     Dosage: 50 MG, QW (WEEKLY)
     Route: 058
     Dates: start: 20211110
  2. ERELZI [Suspect]
     Active Substance: ETANERCEPT-SZZS
     Dosage: UNK
     Route: 065

REACTIONS (4)
  - Death [Fatal]
  - Visual impairment [Unknown]
  - Loss of personal independence in daily activities [Unknown]
  - Arthralgia [Unknown]

NARRATIVE: CASE EVENT DATE: 20240508
